FAERS Safety Report 7653163 (Version 3)
Quarter: 2014Q1

REPORT INFORMATION
  Report Type: Spontaneous
  Country: GB (occurrence: GB)
  Receive Date: 20101102
  Receipt Date: 20140204
  Transmission Date: 20141002
  Serious: Yes (Other)
  Sender: FDA-Public Use
  Company Number: PHFR2010GB01947

PATIENT
  Age: 22 Year
  Sex: Male

DRUGS (6)
  1. CLOZARIL [Suspect]
     Indication: SCHIZOPHRENIA
     Dosage: 150 MG, QD
     Route: 048
     Dates: start: 20100727, end: 201008
  2. CLOZARIL [Suspect]
     Dosage: 175 MG, QD
     Route: 048
  3. CLOZARIL [Suspect]
     Dosage: 200 MG, BID
     Route: 048
  4. PROCYCLIDINE [Concomitant]
     Indication: EXTRAPYRAMIDAL DISORDER
     Dosage: 5 MG, UNK
     Route: 048
  5. ATORVASTATIN [Concomitant]
     Indication: LIPIDS INCREASED
     Dosage: 20 MG, QD
     Route: 048
     Dates: start: 20100804
  6. SALBUTAMOL [Concomitant]
     Indication: ASTHMA
     Dosage: 2 DF, PRN

REACTIONS (3)
  - Alcohol poisoning [Unknown]
  - Blood pressure decreased [Unknown]
  - Tachycardia [Recovering/Resolving]
